FAERS Safety Report 9322824 (Version 1)
Quarter: 2013Q2

REPORT INFORMATION
  Report Type: Report from Study
  Country: US (occurrence: US)
  Receive Date: 20130601
  Receipt Date: 20130601
  Transmission Date: 20140414
  Serious: Yes (Other)
  Sender: FDA-Public Use
  Company Number: US-ROCHE-1229422

PATIENT
  Sex: 0

DRUGS (5)
  1. BEVACIZUMAB [Suspect]
     Indication: GLIOBLASTOMA MULTIFORME
     Dosage: 28 DAYS POST-OPERATIVELY.
     Route: 065
  2. BEVACIZUMAB [Suspect]
     Dosage: DAY 1 AND 15
     Route: 065
  3. TEMOZOLOMIDE [Suspect]
     Indication: GLIOBLASTOMA MULTIFORME
     Route: 065
  4. TEMOZOLOMIDE [Suspect]
     Dosage: ON DAYS 1-5 OF A 28-DAY CYCLE
     Route: 065
  5. CARMUSTINE [Suspect]
     Indication: GLIOBLASTOMA MULTIFORME
     Route: 065

REACTIONS (9)
  - Brain oedema [Unknown]
  - Fatigue [Unknown]
  - Wound infection [Unknown]
  - Meningitis [Unknown]
  - Thrombocytopenia [Unknown]
  - Cerebrovascular accident [Unknown]
  - Infection [Unknown]
  - Embolism venous [Unknown]
  - Enterocolitis [Unknown]
